FAERS Safety Report 8555417-0 (Version None)
Quarter: 2012Q3

REPORT INFORMATION
  Report Type: 
  Country: None (occurrence: None)
  Receive Date: 20120731
  Receipt Date: 20120327
  Transmission Date: 20120928
  Serious: No
  Sender: FDA-Public Use
  Company Number: US-ASTRAZENECA-2011SE27348

PATIENT
  Age: 63 Year
  Sex: Female

DRUGS (1)
  1. SEROQUEL XR [Suspect]
     Indication: DEPRESSION
     Route: 048

REACTIONS (4)
  - INTENTIONAL DRUG MISUSE [None]
  - FEELING ABNORMAL [None]
  - BRADYPHRENIA [None]
  - ROAD TRAFFIC ACCIDENT [None]
